FAERS Safety Report 24898867 (Version 1)
Quarter: 2025Q1

REPORT INFORMATION
  Report Type: Spontaneous
  Country: CN (occurrence: CN)
  Receive Date: 20250129
  Receipt Date: 20250129
  Transmission Date: 20250409
  Serious: Yes (Other)
  Sender: ROCHE
  Company Number: CN-ROCHE-10000185202

PATIENT
  Age: 59 Year
  Sex: Male

DRUGS (3)
  1. TRASTUZUMAB [Suspect]
     Active Substance: TRASTUZUMAB
     Indication: Lung neoplasm malignant
     Route: 065
     Dates: start: 20180530, end: 20190121
  2. PEMETREXED [Suspect]
     Active Substance: PEMETREXED
     Indication: Lung neoplasm malignant
     Route: 065
     Dates: start: 20180530, end: 20190121
  3. PLATINUM [Suspect]
     Active Substance: PLATINUM
     Indication: Lung neoplasm malignant
     Route: 065
     Dates: start: 20180530, end: 20190121

REACTIONS (1)
  - Disease progression [Unknown]
